FAERS Safety Report 14746247 (Version 1)
Quarter: 2018Q2

REPORT INFORMATION
  Report Type: Spontaneous
  Country: US (occurrence: US)
  Receive Date: 20180411
  Receipt Date: 20180411
  Transmission Date: 20180711
  Serious: Yes (Other)
  Sender: FDA-Public Use
  Company Number: US-JNJFOC-20180407007

PATIENT
  Sex: Male
  Weight: 81.65 kg

DRUGS (1)
  1. ULTRAM [Suspect]
     Active Substance: TRAMADOL HYDROCHLORIDE
     Indication: NECK PAIN
     Route: 048

REACTIONS (4)
  - Respiratory disorder [Unknown]
  - Tourette^s disorder [Unknown]
  - Fatigue [Unknown]
  - Insomnia [Unknown]
